FAERS Safety Report 23914990 (Version 3)
Quarter: 2024Q3

REPORT INFORMATION
  Report Type: Spontaneous
  Country: US (occurrence: US)
  Receive Date: 20240529
  Receipt Date: 20240806
  Transmission Date: 20241016
  Serious: Yes (Hospitalization)
  Sender: NOVARTIS
  Company Number: US-002147023-NVSC2024US112300

PATIENT
  Age: 0 Year
  Sex: Female
  Weight: 6.29 kg

DRUGS (3)
  1. ZOLGENSMA [Suspect]
     Active Substance: ONASEMNOGENE ABEPARVOVEC-XIOI
     Indication: Spinal muscular atrophy
     Dosage: UNK, ONCE/SINGLE
     Route: 042
     Dates: start: 20240514, end: 20240514
  2. PREDNISOLONE [Concomitant]
     Active Substance: PREDNISOLONE
     Indication: Immunology test
     Dosage: UNK, QD(MG/KG)
     Route: 048
     Dates: start: 20240513
  3. FAMOTIDINE [Concomitant]
     Active Substance: FAMOTIDINE
     Indication: Product used for unknown indication
     Dosage: 0.4 ML, BID
     Route: 048
     Dates: start: 20240513

REACTIONS (6)
  - Troponin increased [Recovered/Resolved]
  - Hypertransaminasaemia [Recovered/Resolved]
  - Blood bilirubin increased [Unknown]
  - Platelet count decreased [Recovered/Resolved]
  - Troponin increased [Unknown]
  - Activated partial thromboplastin time prolonged [Unknown]

NARRATIVE: CASE EVENT DATE: 20240520
